FAERS Safety Report 16211825 (Version 1)
Quarter: 2019Q2

REPORT INFORMATION
  Report Type: Report from Study
  Country: CL (occurrence: CL)
  Receive Date: 20190418
  Receipt Date: 20190418
  Transmission Date: 20190711
  Serious: Yes (Hospitalization, Other)
  Sender: FDA-Public Use
  Company Number: CL-ROCHE-2304572

PATIENT
  Age: 73 Year
  Sex: Female

DRUGS (1)
  1. TECENTRIQ [Suspect]
     Active Substance: ATEZOLIZUMAB
     Indication: LUNG NEOPLASM MALIGNANT
     Dosage: LAST DOSE: FIRST WEEK OF FEBRUARY/2019
     Route: 042
     Dates: start: 20181112

REACTIONS (10)
  - Balance disorder [Unknown]
  - Decreased appetite [Unknown]
  - Inappropriate antidiuretic hormone secretion [Unknown]
  - Cough [Unknown]
  - Ligament sprain [Unknown]
  - Cerebrovascular accident [Unknown]
  - Hyponatraemia [Unknown]
  - Hypokalaemia [Unknown]
  - Anaemia macrocytic [Unknown]
  - Mass [Unknown]

NARRATIVE: CASE EVENT DATE: 20190314
